FAERS Safety Report 16183141 (Version 1)
Quarter: 2019Q2

REPORT INFORMATION
  Report Type: Spontaneous
  Country: US (occurrence: US)
  Receive Date: 20190411
  Receipt Date: 20190411
  Transmission Date: 20190711
  Serious: No
  Sender: FDA-Public Use
  Company Number: US-BIOGEN-2019BI00722171

PATIENT
  Sex: Female

DRUGS (1)
  1. TECFIDERA [Suspect]
     Active Substance: DIMETHYL FUMARATE
     Indication: MULTIPLE SCLEROSIS
     Route: 048
     Dates: start: 20171207

REACTIONS (6)
  - Feeling abnormal [Unknown]
  - Eye pain [Unknown]
  - Pain [Unknown]
  - Balance disorder [Unknown]
  - Myalgia [Unknown]
  - Dyspnoea [Unknown]
